FAERS Safety Report 17912600 (Version 1)
Quarter: 2020Q2

REPORT INFORMATION
  Report Type: Report from Study
  Country: NL (occurrence: NL)
  Receive Date: 20200618
  Receipt Date: 20200618
  Transmission Date: 20200714
  Serious: Yes (Other)
  Sender: FDA-Public Use
  Company Number: NVSC2020NL168781

PATIENT
  Age: 55 Year
  Sex: Male

DRUGS (1)
  1. ZOMETA [Suspect]
     Active Substance: ZOLEDRONIC ACID
     Indication: RENAL CELL CARCINOMA
     Dosage: 1 OT, QMO (1.00 X PER 4 WEEKS)
     Route: 042

REACTIONS (2)
  - Product use in unapproved indication [Unknown]
  - Thrombosis [Unknown]

NARRATIVE: CASE EVENT DATE: 20200612
